FAERS Safety Report 7525784-5 (Version None)
Quarter: 2011Q2

REPORT INFORMATION
  Report Type: 
  Country: None (occurrence: None)
  Receive Date: 20110602
  Receipt Date: 20110602
  Transmission Date: 20111010
  Serious: Yes (Disabling, Other)
  Sender: FDA-Public Use
  Company Number: None

PATIENT
  Sex: Female
  Weight: 97.977 kg

DRUGS (1)
  1. GLUCOPHAGE XR [Suspect]
     Indication: DIABETES MELLITUS
     Dosage: 500MG DAILY
     Dates: start: 20020101, end: 20110101

REACTIONS (16)
  - ADRENAL INSUFFICIENCY [None]
  - SINUS DISORDER [None]
  - HYPOTHYROIDISM [None]
  - GAIT DISTURBANCE [None]
  - DIZZINESS [None]
  - INFLAMMATION [None]
  - TINNITUS [None]
  - CATARACT [None]
  - FALL [None]
  - PALPITATIONS [None]
  - OSTEOPOROSIS [None]
  - ECZEMA [None]
  - ARTHROPATHY [None]
  - ASTHENIA [None]
  - INCONTINENCE [None]
  - SKIN DISCOLOURATION [None]
